FAERS Safety Report 10224031 (Version 1)
Quarter: 2014Q2

REPORT INFORMATION
  Report Type: Spontaneous
  Country: US (occurrence: US)
  Receive Date: 20140609
  Receipt Date: 20140609
  Transmission Date: 20141212
  Serious: No
  Sender: FDA-Public Use
  Company Number: US-DRREDDYS-USA/USA/14/0039452

PATIENT
  Age: 58 Year
  Sex: Female

DRUGS (1)
  1. FEXOFENADINE HCL  OTC [Suspect]
     Indication: HYPERSENSITIVITY
     Route: 048
     Dates: start: 201403

REACTIONS (4)
  - Drug ineffective [Unknown]
  - Accidental overdose [Unknown]
  - No adverse event [Unknown]
  - Product quality issue [Unknown]
